FAERS Safety Report 21914909 (Version 1)
Quarter: 2023Q1

REPORT INFORMATION
  Report Type: Spontaneous
  Country: BE (occurrence: BE)
  Receive Date: 20230126
  Receipt Date: 20230126
  Transmission Date: 20230418
  Serious: Yes (Other)
  Sender: FDA-Public Use
  Company Number: BE-CELLTRION INC.-2023BE001907

PATIENT

DRUGS (6)
  1. INFLIXIMAB [Suspect]
     Active Substance: INFLIXIMAB
     Indication: Crohn^s disease
     Dosage: 5 MG/KG EVERY 8 WEEKS FOR THE PAST }/ 4 MONTHS
  2. INFLIXIMAB [Suspect]
     Active Substance: INFLIXIMAB
     Dosage: INTENSIFICATION OF INFLIXIMAB AT 10 MG/KG EVERY 8 WEEKS
  3. INFLIXIMAB [Suspect]
     Active Substance: INFLIXIMAB
     Dosage: 5MG/KG. IF NO REMISSION AT 4 WEEKS, REINFUSION AT 10 MG/KG AND THEN BACK TO 5 MG/KG
  4. AZATHIOPRINE [Suspect]
     Active Substance: AZATHIOPRINE
     Indication: Crohn^s disease
  5. MERCAPTOPURINE [Suspect]
     Active Substance: MERCAPTOPURINE
     Indication: Crohn^s disease
  6. METHOTREXATE [Suspect]
     Active Substance: METHOTREXATE
     Indication: Crohn^s disease

REACTIONS (9)
  - Crohn^s disease [Unknown]
  - Crohn^s disease [Unknown]
  - Renal failure [Unknown]
  - Gastric operation [Unknown]
  - Appendicitis [Unknown]
  - Infusion related reaction [Unknown]
  - Treatment failure [Unknown]
  - Loss of therapeutic response [Unknown]
  - Off label use [Unknown]
